FAERS Safety Report 15244579 (Version 2)
Quarter: 2018Q3

REPORT INFORMATION
  Report Type: Spontaneous
  Country: US (occurrence: US)
  Receive Date: 20180806
  Receipt Date: 20180917
  Transmission Date: 20181010
  Serious: No
  Sender: FDA-Public Use
  Company Number: US-GLAXOSMITHKLINE-US2018133418

PATIENT
  Sex: Female

DRUGS (1)
  1. BENLYSTA [Suspect]
     Active Substance: BELIMUMAB
     Indication: SYSTEMIC LUPUS ERYTHEMATOSUS
     Dosage: 1 ML, UNK
     Route: 058

REACTIONS (4)
  - Injection site pain [Recovered/Resolved]
  - Alopecia [Recovering/Resolving]
  - Drug administered to patient of inappropriate age [Not Recovered/Not Resolved]
  - Condition aggravated [Unknown]
